FAERS Safety Report 4814549-0 (Version None)
Quarter: 2005Q4

REPORT INFORMATION
  Report Type: 
  Country: None (occurrence: None)
  Receive Date: 20051028
  Receipt Date: 20030613
  Transmission Date: 20060501
  Serious: Yes (Other)
  Sender: FDA-Public Use
  Company Number: CZ-SOLVAY-00205003454

PATIENT
  Age: 28200 Day
  Sex: Male
  Weight: 89 kg

DRUGS (1)
  1. DPERINDOPRIL [Suspect]
     Indication: CARDIAC FAILURE CONGESTIVE
     Dosage: DAILY DOSE: 4 MILLIGRAM(S)
     Route: 048
     Dates: start: 20021016, end: 20030610

REACTIONS (3)
  - CARDIAC FAILURE [None]
  - DILATATION VENTRICULAR [None]
  - DRUG INEFFECTIVE [None]
